FAERS Safety Report 4381662-4 (Version None)
Quarter: 2004Q2

REPORT INFORMATION
  Report Type: 
  Country: None (occurrence: None)
  Receive Date: 20040603
  Receipt Date: 20031107
  Transmission Date: 20050107
  Serious: Yes (Other)
  Sender: FDA-Public Use
  Company Number: 200318122US

PATIENT
  Age: 56 Year
  Sex: Female
  Weight: 91 kg

DRUGS (3)
  1. LOVENOX [Suspect]
     Indication: DEEP VEIN THROMBOSIS
     Dosage: 100 MG QD SC
     Route: 058
     Dates: start: 20020906, end: 20020910
  2. LOVENOX [Suspect]
     Indication: DEEP VEIN THROMBOSIS
     Dosage: 100 MG BID SC
     Route: 058
     Dates: start: 20021029, end: 20021103
  3. HEPARIN [Concomitant]

REACTIONS (2)
  - DEEP VEIN THROMBOSIS [None]
  - HEPARIN-INDUCED THROMBOCYTOPENIA [None]
